FAERS Safety Report 23169853 (Version 1)
Quarter: 2023Q4

REPORT INFORMATION
  Report Type: Spontaneous
  Country: US (occurrence: US)
  Receive Date: 20231110
  Receipt Date: 20231110
  Transmission Date: 20240110
  Serious: No
  Sender: FDA-Public Use
  Company Number: US-SANDOZ-SDZ2023US052005

PATIENT
  Sex: Female

DRUGS (1)
  1. DUREZOL [Suspect]
     Active Substance: DIFLUPREDNATE
     Indication: Product used for unknown indication
     Dosage: 1 DROP
     Route: 065

REACTIONS (5)
  - Hypersensitivity [Unknown]
  - General physical health deterioration [Unknown]
  - Ocular hyperaemia [Unknown]
  - Eye irritation [Unknown]
  - Pain [Unknown]
